FAERS Safety Report 4614140-5 (Version None)
Quarter: 2005Q1

REPORT INFORMATION
  Report Type: 
  Country: None (occurrence: None)
  Receive Date: 20050316
  Receipt Date: 20050225
  Transmission Date: 20050727
  Serious: Yes (Other)
  Sender: FDA-Public Use
  Company Number: EWC050342904

PATIENT
  Age: 74 Year
  Sex: Male
  Weight: 56 kg

DRUGS (4)
  1. GEMZAR [Suspect]
     Indication: PANCREATIC CARCINOMA
     Dosage: 1300 MG
     Dates: start: 20040525
  2. SOLU-MEDROL [Concomitant]
  3. ACETAMINOPHEN [Concomitant]
  4. PHENERGAN [Concomitant]

REACTIONS (1)
  - PURPURA [None]
